FAERS Safety Report 21870953 (Version 1)
Quarter: 2023Q1

REPORT INFORMATION
  Report Type: Spontaneous
  Country: US (occurrence: None)
  Receive Date: 20230113
  Receipt Date: 20230113
  Transmission Date: 20230417
  Serious: No
  Sender: FDA-Public Use
  Company Number: None

PATIENT
  Sex: Female

DRUGS (1)
  1. ENBREL [Suspect]
     Active Substance: ETANERCEPT
     Indication: Rheumatoid arthritis
     Dosage: 50MG WEEKLY SUBCUTANEOUS
     Route: 058
     Dates: start: 20220301

REACTIONS (4)
  - Joint swelling [None]
  - Condition aggravated [None]
  - Arthralgia [None]
  - Drug ineffective [None]
